FAERS Safety Report 4450618-5 (Version None)
Quarter: 2004Q3

REPORT INFORMATION
  Report Type: 
  Country: None (occurrence: None)
  Receive Date: 20040913
  Receipt Date: 20040618
  Transmission Date: 20050211
  Serious: No
  Sender: FDA-Public Use
  Company Number: 2004-BP-05075BP(0)

PATIENT

DRUGS (1)
  1. SPIRIVA [Suspect]
     Dosage: NR (18 MCG, NOT REPORTED), IH

REACTIONS (3)
  - DIARRHOEA [None]
  - DIZZINESS [None]
  - NAUSEA [None]
